FAERS Safety Report 22208673 (Version 1)
Quarter: 2023Q2

REPORT INFORMATION
  Report Type: Spontaneous
  Country: US (occurrence: US)
  Receive Date: 20230413
  Receipt Date: 20230413
  Transmission Date: 20230721
  Serious: No
  Sender: FDA-Public Use
  Company Number: US-BAYER-2023A046343

PATIENT
  Age: 80 Year
  Sex: Female

DRUGS (1)
  1. KERENDIA [Suspect]
     Active Substance: FINERENONE
     Dosage: 3 WEEKS

REACTIONS (2)
  - Diarrhoea [Recovered/Resolved]
  - Diarrhoea [None]

NARRATIVE: CASE EVENT DATE: 20230106
